FAERS Safety Report 4983956-8 (Version None)
Quarter: 2006Q2

REPORT INFORMATION
  Report Type: 
  Country: None (occurrence: None)
  Receive Date: 20060426
  Receipt Date: 20051110
  Transmission Date: 20061013
  Serious: Yes (Hospitalization)
  Sender: FDA-Public Use
  Company Number: US-MERCK-0511USA02050

PATIENT
  Age: 73 Year
  Sex: Male
  Weight: 95 kg

DRUGS (3)
  1. VIOXX [Suspect]
     Indication: ARTHRALGIA
     Route: 048
     Dates: start: 20020101, end: 20040601
  2. VIOXX [Suspect]
     Route: 048
     Dates: start: 20040601, end: 20040719
  3. ALEVE [Concomitant]
     Route: 065

REACTIONS (7)
  - CATHETERISATION CARDIAC [None]
  - DEPRESSION [None]
  - INSOMNIA [None]
  - MITRAL VALVE REPAIR [None]
  - MYOCARDIAL INFARCTION [None]
  - PALPITATIONS [None]
  - PLEURAL EFFUSION [None]
